FAERS Safety Report 5114284-8 (Version None)
Quarter: 2006Q3

REPORT INFORMATION
  Report Type: 
  Country: None (occurrence: None)
  Receive Date: 20060925
  Receipt Date: 20060915
  Transmission Date: 20061208
  Serious: Yes (Hospitalization)
  Sender: FDA-Public Use
  Company Number: BR-ABBOTT-06P-020-0344064-00

PATIENT
  Sex: Male
  Weight: 58 kg

DRUGS (2)
  1. KALETRA [Suspect]
     Indication: HIV INFECTION
     Dosage: 400/100MG
     Route: 048
     Dates: start: 20051109
  2. COMPLEJO B [Concomitant]
     Indication: VITAMIN B COMPLEX DEFICIENCY
     Route: 048

REACTIONS (1)
  - EMPYEMA [None]
